FAERS Safety Report 7092038-3 (Version None)
Quarter: 2010Q4

REPORT INFORMATION
  Report Type: 
  Country: None (occurrence: None)
  Receive Date: 20101109
  Receipt Date: 20080917
  Transmission Date: 20110411
  Serious: No
  Sender: FDA-Public Use
  Company Number: US-KINGPHARMUSA00001-K200801097

PATIENT
  Sex: Female
  Weight: 72.562 kg

DRUGS (1)
  1. SKELAXIN [Suspect]
     Indication: MUSCLE SPASMS
     Dosage: 800 MG, QID
     Route: 048
     Dates: start: 20080101, end: 20080101

REACTIONS (2)
  - RASH GENERALISED [None]
  - URTICARIA [None]
